FAERS Safety Report 15949907 (Version 2)
Quarter: 2019Q2

REPORT INFORMATION
  Report Type: Spontaneous
  Country: US (occurrence: US)
  Receive Date: 20190212
  Receipt Date: 20190401
  Transmission Date: 20190711
  Serious: Yes (Hospitalization)
  Sender: FDA-Public Use
  Company Number: US-JNJFOC-20190203173

PATIENT
  Age: 85 Year
  Sex: Male
  Weight: 85.73 kg

DRUGS (5)
  1. LEUPROLIDE ACETATE. [Concomitant]
     Active Substance: LEUPROLIDE ACETATE
     Indication: PROSTATE CANCER
     Route: 065
  2. ZYTIGA [Suspect]
     Active Substance: ABIRATERONE ACETATE
     Indication: PROSTATE CANCER
     Route: 048
     Dates: start: 201801
  3. PREDNISONE. [Concomitant]
     Active Substance: PREDNISONE
     Indication: PROSTATE CANCER
     Route: 065
     Dates: start: 201801
  4. TUMS [Concomitant]
     Active Substance: CALCIUM CARBONATE
     Indication: PRODUCT USED FOR UNKNOWN INDICATION
  5. XGEVA [Concomitant]
     Active Substance: DENOSUMAB
     Indication: PROSTATE CANCER
     Route: 065

REACTIONS (7)
  - Chronic kidney disease [Unknown]
  - Peripheral swelling [Unknown]
  - Confusional state [Not Recovered/Not Resolved]
  - Anaemia of malignant disease [Unknown]
  - Product dose omission [Unknown]
  - Pyelonephritis acute [Unknown]
  - Skin disorder [Unknown]

NARRATIVE: CASE EVENT DATE: 2018
